FAERS Safety Report 6143593-9 (Version None)
Quarter: 2009Q2

REPORT INFORMATION
  Report Type: 
  Country: None (occurrence: None)
  Receive Date: 20090403
  Receipt Date: 20090323
  Transmission Date: 20091009
  Serious: Yes (Other)
  Sender: FDA-Public Use
  Company Number: GB-PFIZER INC-2008155189

PATIENT

DRUGS (3)
  1. CHAMPIX [Suspect]
     Indication: SMOKING CESSATION THERAPY
     Dosage: 0.5 MG, UNK
     Route: 048
     Dates: start: 20080926
  2. PROPRANOLOL [Concomitant]
     Dosage: 80 MG, UNK
     Route: 048
     Dates: start: 20070215
  3. CERAZETTE [Concomitant]
     Dosage: UNK
     Route: 048
     Dates: start: 20080313, end: 20090305

REACTIONS (3)
  - NIGHTMARE [None]
  - PSYCHOTIC DISORDER [None]
  - SOMNAMBULISM [None]
